FAERS Safety Report 25897177 (Version 1)
Quarter: 2025Q4

REPORT INFORMATION
  Report Type: Spontaneous
  Country: US (occurrence: US)
  Receive Date: 20251008
  Receipt Date: 20251008
  Transmission Date: 20260118
  Serious: No
  Sender: SANOFI AVENTIS
  Company Number: US-SA-2025SA298223

PATIENT
  Sex: Male

DRUGS (8)
  1. DUPIXENT [Suspect]
     Active Substance: DUPILUMAB
     Indication: Dermatitis atopic
     Dosage: 300 MG, QOW
     Route: 058
  2. ASPIRIN [Concomitant]
     Active Substance: ASPIRIN
  3. COENZYME Q10 [Concomitant]
     Active Substance: DIETARY SUPPLEMENT\UBIDECARENONE
  4. ELIQUIS [Concomitant]
     Active Substance: APIXABAN
  5. TAMSULOSIN [Concomitant]
     Active Substance: TAMSULOSIN
  6. LISINOPRIL [Concomitant]
     Active Substance: LISINOPRIL
  7. ROSUVASTATIN [Concomitant]
     Active Substance: ROSUVASTATIN
  8. ATENOLOL [Concomitant]
     Active Substance: ATENOLOL

REACTIONS (1)
  - Inappropriate schedule of product administration [Unknown]
